FAERS Safety Report 6863423-7 (Version None)
Quarter: 2010Q3

REPORT INFORMATION
  Report Type: 
  Country: None (occurrence: None)
  Receive Date: 20100719
  Receipt Date: 20100708
  Transmission Date: 20110219
  Serious: Yes (Other)
  Sender: FDA-Public Use
  Company Number: 635689

PATIENT
  Age: 46 Year
  Sex: Female
  Weight: 99 kg

DRUGS (1)
  1. PRECEDEX [Suspect]
     Indication: ALCOHOL WITHDRAWAL SYNDROME
     Dosage: 0.8 MCG/ KG/ HR, INTRAVENOJS
     Route: 042
     Dates: start: 20100708, end: 20100708

REACTIONS (2)
  - BLISTER [None]
  - SWELLING [None]
